FAERS Safety Report 17565535 (Version 1)
Quarter: 2020Q1

REPORT INFORMATION
  Report Type: Spontaneous
  Country: US (occurrence: US)
  Receive Date: 20200320
  Receipt Date: 20200320
  Transmission Date: 20200409
  Serious: Yes (Hospitalization)
  Sender: FDA-Public Use
  Company Number: US-ABBVIE-20K-163-3322155-00

PATIENT
  Sex: Female

DRUGS (1)
  1. MAVIRET [Suspect]
     Active Substance: GLECAPREVIR\PIBRENTASVIR
     Indication: PRODUCT USED FOR UNKNOWN INDICATION
     Dosage: 400/100 MG
     Route: 048
     Dates: start: 201909

REACTIONS (4)
  - Headache [Unknown]
  - Mood swings [Recovered/Resolved]
  - Nausea [Unknown]
  - Diverticulitis [Unknown]
